FAERS Safety Report 8091348-0 (Version None)
Quarter: 2012Q1

REPORT INFORMATION
  Report Type: 
  Country: None (occurrence: None)
  Receive Date: 20120131
  Receipt Date: 20120119
  Transmission Date: 20120608
  Serious: Yes (Other)
  Sender: FDA-Public Use
  Company Number: US-ELI_LILLY_AND_COMPANY-US201112006754

PATIENT
  Sex: Male

DRUGS (4)
  1. FLUOXETINE [Concomitant]
     Indication: ANXIETY
     Dosage: UNK
  2. CYMBALTA [Suspect]
     Indication: ANXIETY
     Dosage: 30 MG, BID
     Dates: start: 20111101, end: 20111201
  3. CYMBALTA [Suspect]
     Dosage: 90 MG, QD
     Dates: end: 20120105
  4. CYMBALTA [Suspect]
     Dosage: 30 MG, BID
     Dates: start: 20111217

REACTIONS (10)
  - PARAESTHESIA [None]
  - PHARYNGEAL OEDEMA [None]
  - PARAESTHESIA ORAL [None]
  - HYPOAESTHESIA ORAL [None]
  - BLINDNESS UNILATERAL [None]
  - DRY MOUTH [None]
  - HYPOAESTHESIA [None]
  - VISION BLURRED [None]
  - DRUG INEFFECTIVE [None]
  - FEELING ABNORMAL [None]
